FAERS Safety Report 7354897-6 (Version None)
Quarter: 2011Q1

REPORT INFORMATION
  Report Type: 
  Country: None (occurrence: None)
  Receive Date: 20110316
  Receipt Date: 20091130
  Transmission Date: 20110831
  Serious: Yes (Death, Hospitalization, Other)
  Sender: FDA-Public Use
  Company Number: US-BAYER-200941217NA

PATIENT
  Sex: Male
  Weight: 83.9 kg

DRUGS (8)
  1. TRASYLOL [Suspect]
     Indication: MITRAL VALVE REPAIR
  2. METOPROLOL SUCCINATE [Concomitant]
     Indication: CARDIAC DISORDER
     Dosage: 25 MG, BID
     Route: 048
     Dates: start: 19980321, end: 19980403
  3. ASPIRIN [Concomitant]
     Dosage: 325 MG/24HR, UNK
     Route: 048
     Dates: start: 19980321, end: 19980403
  4. TRASYLOL [Suspect]
     Indication: CORONARY ARTERY BYPASS
     Dosage: UNK
     Route: 042
     Dates: start: 19980403
  5. NITROGLYCERIN [Concomitant]
     Indication: ANGINA PECTORIS
     Dosage: 1/2 INCH EVERY 8 HOURS
     Route: 061
     Dates: start: 19980322, end: 19980403
  6. FUROSEMIDE [Concomitant]
     Dosage: 20 MG/24HR, UNK
     Route: 048
     Dates: start: 19980326, end: 20080101
  7. AMIODARONE HCL [Concomitant]
     Indication: ARRHYTHMIA
     Dosage: 400 MG, TID
     Route: 048
     Dates: start: 19980326, end: 19980403
  8. DIGOXIN [Concomitant]
     Indication: HEART RATE ABNORMAL
     Dosage: 0.25 MG/24HR
     Route: 048
     Dates: start: 19980322, end: 19980403

REACTIONS (14)
  - FEAR [None]
  - MULTI-ORGAN FAILURE [None]
  - ANHEDONIA [None]
  - CARDIAC FAILURE CONGESTIVE [None]
  - ANXIETY [None]
  - PAIN [None]
  - RENAL INJURY [None]
  - RENAL IMPAIRMENT [None]
  - DEATH [None]
  - EMOTIONAL DISTRESS [None]
  - INJURY [None]
  - RENAL FAILURE [None]
  - STRESS [None]
  - UNEVALUABLE EVENT [None]
